FAERS Safety Report 16053805 (Version 1)
Quarter: 2019Q1

REPORT INFORMATION
  Report Type: Spontaneous
  Country: MX (occurrence: MX)
  Receive Date: 20190308
  Receipt Date: 20190308
  Transmission Date: 20190418
  Serious: Yes (Other)
  Sender: FDA-Public Use
  Company Number: MX-GE HEALTHCARE LIFE SCIENCES-2019CSU000820

PATIENT

DRUGS (2)
  1. VISIPAQUE [Suspect]
     Active Substance: IODIXANOL
     Indication: COMPUTERISED TOMOGRAM
     Dosage: 22 MG, SINGLE
     Route: 042
  2. VISIPAQUE [Suspect]
     Active Substance: IODIXANOL
     Indication: CONGENITAL ANOMALY

REACTIONS (5)
  - Oxygen saturation decreased [Recovered/Resolved]
  - Bronchospasm [Recovered/Resolved]
  - Cough [Recovered/Resolved]
  - Erythema [Recovered/Resolved]
  - Vasodilatation [Unknown]

NARRATIVE: CASE EVENT DATE: 20180212
